FAERS Safety Report 5017266-X (Version None)
Quarter: 2006Q2

REPORT INFORMATION
  Report Type: 
  Country: None (occurrence: None)
  Receive Date: 20060414
  Receipt Date: 20060303
  Transmission Date: 20061013
  Serious: No
  Sender: FDA-Public Use
  Company Number: 2006SP001059

PATIENT
  Age: 43 Year
  Sex: Female
  Weight: 65.7716 kg

DRUGS (5)
  1. LUNESTA [Suspect]
     Indication: INSOMNIA
     Dosage: SEE IMAGE
     Route: 048
     Dates: start: 20051001, end: 20060201
  2. LUNESTA [Suspect]
     Indication: INSOMNIA
     Dosage: SEE IMAGE
     Route: 048
     Dates: start: 20060227
  3. DAYPRO [Concomitant]
  4. AMBIEN [Concomitant]
  5. TYLENOL (CAPLET) [Concomitant]

REACTIONS (1)
  - MIDDLE INSOMNIA [None]
